FAERS Safety Report 4898718-X (Version None)
Quarter: 2006Q1

REPORT INFORMATION
  Report Type: 
  Country: None (occurrence: None)
  Receive Date: 20060127
  Receipt Date: 20060117
  Transmission Date: 20060701
  Serious: Yes (Other)
  Sender: FDA-Public Use
  Company Number: 2006009322

PATIENT
  Sex: Female

DRUGS (2)
  1. CELEBREX [Suspect]
     Indication: ILL-DEFINED DISORDER
     Dosage: ORAL
     Route: 048
     Dates: start: 20060116, end: 20060116
  2. BENADRYL [Suspect]
     Indication: THROAT TIGHTNESS
     Dosage: (50 MG), ORAL
     Route: 048
     Dates: start: 20060116

REACTIONS (2)
  - THERAPY NON-RESPONDER [None]
  - THROAT TIGHTNESS [None]
